FAERS Safety Report 9859569 (Version 2)
Quarter: 2014Q2

REPORT INFORMATION
  Report Type: Report from Study
  Country: US (occurrence: US)
  Receive Date: 20140131
  Receipt Date: 20140410
  Transmission Date: 20141212
  Serious: Yes (Other)
  Sender: FDA-Public Use
  Company Number: US-CELGENEUS-163-C4047-14013919

PATIENT
  Age: 76 Year
  Sex: Male

DRUGS (28)
  1. CC-4047 [Suspect]
     Indication: PLASMA CELL MYELOMA
     Route: 048
     Dates: start: 20120531, end: 20130129
  2. CARFILZOMIB [Suspect]
     Indication: PLASMA CELL MYELOMA
     Route: 065
     Dates: start: 20120531, end: 20120924
  3. CARFILZOMIB [Suspect]
     Route: 065
     Dates: start: 20120925, end: 20130125
  4. DEXAMETHASONE [Suspect]
     Indication: PLASMA CELL MYELOMA
     Route: 065
     Dates: start: 200905, end: 200909
  5. DEXAMETHASONE [Suspect]
     Route: 065
     Dates: start: 200909, end: 200910
  6. DEXAMETHASONE [Suspect]
     Route: 065
     Dates: start: 20110809, end: 20120501
  7. DEXAMETHASONE [Suspect]
     Route: 065
     Dates: start: 20120531, end: 20120917
  8. DEXAMETHASONE [Suspect]
     Route: 065
     Dates: start: 20120924, end: 20130129
  9. REVLIMID [Suspect]
     Indication: PLASMA CELL MYELOMA
     Route: 048
     Dates: start: 200905, end: 200909
  10. REVLIMID [Suspect]
     Route: 048
     Dates: start: 20100211, end: 20100701
  11. REVLIMID [Suspect]
     Route: 048
     Dates: start: 20110103, end: 20110802
  12. RED BLOOD CELLS [Concomitant]
     Indication: PRODUCT USED FOR UNKNOWN INDICATION
     Route: 041
     Dates: start: 201210
  13. PLATELETS [Concomitant]
     Indication: PRODUCT USED FOR UNKNOWN INDICATION
     Route: 041
     Dates: start: 201210
  14. MELPHALAN [Concomitant]
     Indication: PRODUCT USED FOR UNKNOWN INDICATION
     Route: 065
     Dates: start: 200911
  15. ALLOPURINOL [Concomitant]
     Indication: PRODUCT USED FOR UNKNOWN INDICATION
     Dosage: 200 MILLIGRAM
     Route: 048
     Dates: start: 20120523
  16. AMICAR [Concomitant]
     Indication: PRODUCT USED FOR UNKNOWN INDICATION
     Route: 048
     Dates: start: 20131022
  17. COQ-10 [Concomitant]
     Indication: PRODUCT USED FOR UNKNOWN INDICATION
     Route: 048
     Dates: start: 20130301
  18. FLOMAX [Concomitant]
     Indication: PRODUCT USED FOR UNKNOWN INDICATION
     Dosage: .4 MILLIGRAM
     Route: 048
  19. PANTOPRAZOLE SODIUM [Concomitant]
     Indication: PRODUCT USED FOR UNKNOWN INDICATION
     Dosage: 40 MILLIGRAM
     Route: 048
     Dates: start: 20120522
  20. VITAMIN D3 [Concomitant]
     Indication: PRODUCT USED FOR UNKNOWN INDICATION
     Dosage: 2000 UNIT
     Route: 048
  21. NYSTATIN [Concomitant]
     Indication: ROUTINE HEALTH MAINTENANCE
     Dosage: 15 MILLILITER
     Route: 048
     Dates: start: 20140325
  22. VALACYCLOVIR HCL [Concomitant]
     Indication: ROUTINE HEALTH MAINTENANCE
     Dosage: 2 GRAM
     Route: 048
     Dates: start: 20140318
  23. DESONIDE [Concomitant]
     Indication: INTERTRIGO
     Dosage: .1 PERCENT
     Route: 061
     Dates: start: 20140117
  24. KETOCONAZOLE [Concomitant]
     Indication: INTERTRIGO
     Dosage: 4 PERCENT
     Route: 061
     Dates: start: 20140117
  25. CHLORTHALIDONE [Concomitant]
     Indication: TOBACCO USER
     Dosage: 25 MILLIGRAM
     Route: 048
  26. NADOLOL [Concomitant]
     Indication: TOBACCO USER
     Dosage: 80 MILLIGRAM
     Route: 048
  27. BENDAMUSTINE [Concomitant]
     Indication: PLASMA CELL MYELOMA
     Dates: start: 201302, end: 201308
  28. VIDAZA [Concomitant]
     Indication: PLASMA CELL MYELOMA
     Dates: start: 201309, end: 201401

REACTIONS (1)
  - Acute myeloid leukaemia [Not Recovered/Not Resolved]
